FAERS Safety Report 10011400 (Version 2)
Quarter: 2014Q1

REPORT INFORMATION
  Report Type: Spontaneous
  Country: GB (occurrence: GB)
  Receive Date: 20140314
  Receipt Date: 20140314
  Transmission Date: 20141002
  Serious: Yes (Other)
  Sender: FDA-Public Use
  Company Number: GB-BAXTER-2014BAX009510

PATIENT
  Age: 49 Year
  Sex: Female

DRUGS (10)
  1. SODIUM CHLORIDE 0.9% INTRAVENOUS INFUSION BP [Suspect]
     Indication: RHEUMATIC DISORDER
     Route: 042
     Dates: start: 20140204, end: 20140204
  2. SODIUM CHLORIDE 0.9% INTRAVENOUS INFUSION BP [Suspect]
     Indication: MEDICATION DILUTION
     Route: 042
     Dates: start: 20140204, end: 20140204
  3. RITUXIMAB [Suspect]
     Indication: RHEUMATIC DISORDER
     Route: 042
     Dates: start: 20140204, end: 20140204
  4. RITUXIMAB [Suspect]
     Route: 042
     Dates: start: 20140204, end: 20140204
  5. HYDROCORTISONE [Suspect]
     Indication: ADVERSE DRUG REACTION
     Route: 042
     Dates: start: 20140204
  6. PARACETAMOL [Concomitant]
     Indication: PREMEDICATION
     Route: 048
     Dates: start: 20140204
  7. HYDROCORTISONE [Concomitant]
     Indication: PREMEDICATION
     Route: 042
     Dates: start: 20140204
  8. HYDROCORTISONE [Concomitant]
     Indication: ADVERSE REACTION
     Route: 042
     Dates: start: 20140204
  9. CHLORPHENAMINE [Concomitant]
     Indication: PREMEDICATION
     Route: 042
  10. CHLORPHENAMINE [Concomitant]
     Indication: ADVERSE REACTION
     Route: 042
     Dates: start: 20140204

REACTIONS (3)
  - Throat irritation [Recovered/Resolved with Sequelae]
  - Headache [Recovered/Resolved with Sequelae]
  - Chest discomfort [Recovered/Resolved with Sequelae]
